FAERS Safety Report 9384302 (Version 2)
Quarter: 2014Q1

REPORT INFORMATION
  Report Type: Spontaneous
  Country: IT (occurrence: IT)
  Receive Date: 20130705
  Receipt Date: 20140123
  Transmission Date: 20141002
  Serious: Yes (Hospitalization)
  Sender: FDA-Public Use
  Company Number: PHHY2013IT068106

PATIENT
  Age: 32 Year
  Sex: Female

DRUGS (1)
  1. TOLEP [Suspect]
     Dosage: 12 G, (TOTAL DOSE) 40 TABLETS
     Route: 048
     Dates: start: 20130603, end: 20130603

REACTIONS (3)
  - Sopor [Recovered/Resolved]
  - Suicide attempt [Recovered/Resolved]
  - Drug abuse [Recovered/Resolved]
